FAERS Safety Report 8064457-X (Version None)
Quarter: 2012Q1

REPORT INFORMATION
  Report Type: 
  Country: None (occurrence: None)
  Receive Date: 20120123
  Receipt Date: 20120117
  Transmission Date: 20120608
  Serious: Yes (Hospitalization)
  Sender: FDA-Public Use
  Company Number: PHHY2012FR004338

PATIENT
  Age: 50 Year
  Sex: Female

DRUGS (6)
  1. TROSPIUM CHLORIDE [Concomitant]
     Dosage: UNK UKN, UNK
  2. DITROPAN [Concomitant]
     Dosage: UNK UKN, UNK
  3. BETASERC [Concomitant]
     Dosage: UNK UKN, UNK
  4. GILENYA [Suspect]
     Indication: MULTIPLE SCLEROSIS
     Dosage: 0.5 MG, DAILY
     Dates: start: 20120117
  5. TANGANIL [Concomitant]
     Dosage: UNK UKN, UNK
  6. LYRICA [Concomitant]
     Dosage: UNK UKN, UNK

REACTIONS (3)
  - HEART RATE DECREASED [None]
  - SENSE OF OPPRESSION [None]
  - ATRIOVENTRICULAR BLOCK SECOND DEGREE [None]
